FAERS Safety Report 25588625 (Version 1)
Quarter: 2025Q3

REPORT INFORMATION
  Report Type: Spontaneous
  Country: EU (occurrence: EU)
  Receive Date: 20250722
  Receipt Date: 20250722
  Transmission Date: 20251021
  Serious: Yes (Hospitalization)
  Sender: TEVA
  Company Number: None

PATIENT
  Age: 35 Year
  Sex: Male
  Weight: 120 kg

DRUGS (1)
  1. LEVOFLOXACIN [Suspect]
     Active Substance: LEVOFLOXACIN
     Indication: Sinobronchitis
     Route: 048
     Dates: start: 20211126, end: 20211126

REACTIONS (2)
  - Oral mucosa erosion [Recovered/Resolved]
  - Lip erosion [Recovered/Resolved]
